FAERS Safety Report 12963600 (Version 2)
Quarter: 2016Q4

REPORT INFORMATION
  Report Type: Spontaneous
  Country: DE (occurrence: DE)
  Receive Date: 20161122
  Receipt Date: 20161212
  Transmission Date: 20170207
  Serious: Yes (Other)
  Sender: FDA-Public Use
  Company Number: DE-AMGEN-DEUSP2016163125

PATIENT
  Sex: Male
  Weight: 76 kg

DRUGS (3)
  1. ZOLADEX [Concomitant]
     Active Substance: GOSERELIN ACETATE
     Dosage: 10.8 MG, UNK
  2. XGEVA [Suspect]
     Active Substance: DENOSUMAB
     Indication: PROSTATE CANCER
     Dosage: 120 MG, Q6WK
     Route: 065
     Dates: start: 201301
  3. XGEVA [Suspect]
     Active Substance: DENOSUMAB
     Indication: METASTASES TO BONE

REACTIONS (3)
  - Osteonecrosis of jaw [Not Recovered/Not Resolved]
  - Inappropriate schedule of drug administration [Unknown]
  - Toothache [Unknown]

NARRATIVE: CASE EVENT DATE: 2015
